FAERS Safety Report 8228454-3 (Version None)
Quarter: 2012Q1

REPORT INFORMATION
  Report Type: 
  Country: None (occurrence: None)
  Receive Date: 20120322
  Receipt Date: 20110808
  Transmission Date: 20120608
  Serious: Yes (Other)
  Sender: FDA-Public Use
  Company Number: US-BRISTOL-MYERS SQUIBB COMPANY-15844772

PATIENT
  Age: 64 Year
  Sex: Female

DRUGS (1)
  1. ERBITUX [Suspect]
     Dosage: 07JUN2011, THE PATIENT HAD HER FIRST LOADING DOSE OF ERBITUX.
     Dates: start: 20110607

REACTIONS (1)
  - INFUSION RELATED REACTION [None]
